FAERS Safety Report 5152015-6 (Version None)
Quarter: 2006Q4

REPORT INFORMATION
  Report Type: 
  Country: None (occurrence: None)
  Receive Date: 20061116
  Receipt Date: 20061106
  Transmission Date: 20070319
  Serious: Yes (Other)
  Sender: FDA-Public Use
  Company Number: AU-JNJFOC-20061101921

PATIENT
  Sex: Female
  Weight: 50 kg

DRUGS (5)
  1. RISPERDAL [Suspect]
     Route: 048
  2. RISPERDAL [Suspect]
     Route: 048
  3. RISPERDAL [Suspect]
     Indication: SCHIZOPHRENIA
     Route: 048
  4. NICOTINE [Concomitant]
     Route: 062
  5. DONEPEZIL HYDROCHLORIDE [Concomitant]
     Indication: PRESENILE DEMENTIA

REACTIONS (1)
  - NEUTROPENIA [None]
